FAERS Safety Report 11523568 (Version 1)
Quarter: 2015Q3

REPORT INFORMATION
  Report Type: Spontaneous
  Country: US (occurrence: US)
  Receive Date: 20150903
  Receipt Date: 20150903
  Transmission Date: 20151125
  Serious: No
  Sender: FDA-Public Use
  Company Number: US-ELI_LILLY_AND_COMPANY-US201302008002

PATIENT
  Sex: Male

DRUGS (1)
  1. CYMBALTA [Suspect]
     Active Substance: DULOXETINE HYDROCHLORIDE
     Indication: NERVOUSNESS
     Dosage: 60 MG, QD

REACTIONS (6)
  - Dysgeusia [Not Recovered/Not Resolved]
  - Off label use [Not Recovered/Not Resolved]
  - Agitation [Unknown]
  - Gastrooesophageal reflux disease [Unknown]
  - Emotional disorder [Unknown]
  - Withdrawal syndrome [Unknown]
